FAERS Safety Report 5677455-8 (Version None)
Quarter: 2008Q1

REPORT INFORMATION
  Report Type: 
  Country: None (occurrence: None)
  Receive Date: 20080318
  Receipt Date: 20080306
  Transmission Date: 20080703
  Serious: Yes (Other)
  Sender: FDA-Public Use
  Company Number: CHNY2007IE03956

PATIENT
  Age: 65 Year
  Sex: Female

DRUGS (5)
  1. SCOPODERM TTS [Suspect]
     Indication: INCREASED BRONCHIAL SECRETION
     Dosage: 1 PATCH, TRANSDERMAL, 1/2, TRANSDERMAL, 0.25 DF, Q72H, TRANSDERMAL
     Route: 062
     Dates: start: 20071128
  2. CORDISOL [Concomitant]
  3. XANAX [Concomitant]
  4. LUSTRAL (SERTRALINE HYDROCHLORIDE) TABLET [Concomitant]
  5. LIORESAL [Concomitant]

REACTIONS (2)
  - DRUG HYPERSENSITIVITY [None]
  - WRONG TECHNIQUE IN DRUG USAGE PROCESS [None]
